FAERS Safety Report 7917764-2 (Version None)
Quarter: 2011Q4

REPORT INFORMATION
  Report Type: 
  Country: None (occurrence: None)
  Receive Date: 20111116
  Receipt Date: 20111108
  Transmission Date: 20120403
  Serious: Yes (Life-Threatening, Other)
  Sender: FDA-Public Use
  Company Number: GB-TEVA-308952ISR

PATIENT
  Age: 81 Year
  Sex: Female

DRUGS (1)
  1. LEVOTHYROXINE SODIUM [Suspect]
     Route: 048

REACTIONS (2)
  - DRUG DISPENSING ERROR [None]
  - CEREBROVASCULAR ACCIDENT [None]
